FAERS Safety Report 9442482 (Version 1)
Quarter: 2013Q3

REPORT INFORMATION
  Report Type: Spontaneous
  Country: US (occurrence: None)
  Receive Date: 20130805
  Receipt Date: 20130805
  Transmission Date: 20140515
  Serious: Yes (Other)
  Sender: FDA-Public Use
  Company Number: None

PATIENT
  Age: 82 None
  Sex: Male
  Weight: 104.33 kg

DRUGS (14)
  1. PRAMIPEXOLE [Suspect]
     Indication: RESTLESS LEGS SYNDROME
     Dosage: TAB 0.5 MG 3 TABLETS A DAY 1 TABLET AT NOON 2 TABLETS AT ABOUT 9:30 PM BY MOUTH
     Route: 048
     Dates: start: 20120301
  2. OMEPRAZOLE [Concomitant]
  3. AMLODIPINE [Concomitant]
  4. BENAZEPRIL [Concomitant]
  5. SIMVASTATIN [Concomitant]
  6. BYSTOLIC [Concomitant]
  7. PRAMIPEZOLE [Concomitant]
  8. TAMSULOSIN [Concomitant]
  9. FLUTICASONE NASAL [Concomitant]
  10. ISOSORB MONO ER TAB [Concomitant]
  11. CENTRUM SILVER MULTIVITAMIN [Concomitant]
  12. VITAMIN D [Concomitant]
  13. ASPINN [Concomitant]
  14. VITAMIN B [Concomitant]

REACTIONS (7)
  - Dry mouth [None]
  - Muscle twitching [None]
  - Nausea [None]
  - Constipation [None]
  - Hallucination, visual [None]
  - Insomnia [None]
  - Somnolence [None]
